FAERS Safety Report 5389148-5 (Version None)
Quarter: 2007Q3

REPORT INFORMATION
  Report Type: 
  Country: None (occurrence: None)
  Receive Date: 20070713
  Receipt Date: 20070713
  Transmission Date: 20080115
  Serious: Yes (Hospitalization)
  Sender: FDA-Public Use
  Company Number: None

PATIENT
  Age: 20 Year
  Sex: Female

DRUGS (4)
  1. QUININE 650MG CAP [Suspect]
     Indication: MALARIA
     Dosage: 650 MG CAP BID PO
     Route: 048
     Dates: start: 20060222, end: 20060227
  2. COMPAZINE [Suspect]
     Indication: NAUSEA
     Dosage: 10 MG ONCE IV
     Route: 042
     Dates: start: 20060226, end: 20060226
  3. COMPAZINE [Suspect]
     Indication: VOMITING
     Dosage: 10 MG ONCE IV
     Route: 042
     Dates: start: 20060226, end: 20060226
  4. DOXYCYCLINE [Concomitant]

REACTIONS (4)
  - APHASIA [None]
  - DIZZINESS [None]
  - NAUSEA [None]
  - VOMITING [None]
